FAERS Safety Report 7929799 (Version 2)
Quarter: 2013Q2

REPORT INFORMATION
  Report Type: Spontaneous
  Country: US (occurrence: None)
  Receive Date: 20110302
  Receipt Date: 20120621
  Transmission Date: 20140414
  Serious: Yes (Other)
  Sender: FDA-Public Use
  Company Number: 025843

PATIENT
  Age: 46 Year
  Sex: Female
  Weight: 45.4 kg

DRUGS (1)
  1. CIMZIA [Suspect]
     Indication: CROHN^S DISEASE
     Dosage: 400 MG 1X/MONTH SUBCUTANEOUS
     Route: 058
     Dates: start: 200906

REACTIONS (3)
  - NASOPHARYNGITIS [None]
  - RASH PRURITIC [None]
  - EXFOLIATIVE RASH [None]
